FAERS Safety Report 7403231-1 (Version None)
Quarter: 2011Q2

REPORT INFORMATION
  Report Type: 
  Country: None (occurrence: None)
  Receive Date: 20110408
  Receipt Date: 20110311
  Transmission Date: 20111010
  Serious: No
  Sender: FDA-Public Use
  Company Number: US-BAYER-2011-023582

PATIENT
  Sex: Female
  Weight: 56 kg

DRUGS (7)
  1. ALEVE (CAPLET) [Suspect]
     Dosage: 1 DF, QD
     Route: 048
     Dates: start: 20100101, end: 20110308
  2. LOSARTAN POTASSIUM [Concomitant]
  3. HYDROCHLOROTHIAZIDE [Concomitant]
  4. CALTRATE [CALCIUM CARBONATE] [Concomitant]
  5. LORAZEPAM [Concomitant]
  6. CENTRUM SILVER [Concomitant]
  7. SYNTHROID [Concomitant]

REACTIONS (1)
  - BLOOD PRESSURE INCREASED [None]
